FAERS Safety Report 4278362-8 (Version None)
Quarter: 2004Q1

REPORT INFORMATION
  Report Type: 
  Country: None (occurrence: None)
  Receive Date: 20040123
  Receipt Date: 20040116
  Transmission Date: 20041129
  Serious: Yes (Hospitalization)
  Sender: FDA-Public Use
  Company Number: PHRM2004FR00573

PATIENT
  Age: 63 Year
  Sex: Female
  Weight: 54 kg

DRUGS (9)
  1. AREDIA [Suspect]
     Dosage: 90 MG, QMO
     Route: 042
     Dates: start: 20020213, end: 20021107
  2. ZOMETA [Suspect]
     Dosage: 4 MG, QMO
     Route: 042
     Dates: start: 20021107
  3. MOPRAL [Suspect]
     Route: 048
     Dates: start: 20020408
  4. COSOPT [Suspect]
     Indication: GLAUCOMA
     Dosage: UNK, UNK
     Route: 047
     Dates: start: 20011123, end: 20030101
  5. DURAGESIC [Concomitant]
     Dates: start: 20020301, end: 20020405
  6. TRIFLUCAN [Concomitant]
     Dates: start: 20020402, end: 20020414
  7. VITAMIN B1 AND B6 [Concomitant]
     Indication: WERNICKE'S ENCEPHALOPATHY
  8. SPECIAFOLDINE [Concomitant]
     Indication: WERNICKE'S ENCEPHALOPATHY
  9. TIMOLOL MALEATE [Concomitant]
     Indication: GLAUCOMA

REACTIONS (12)
  - AGITATION [None]
  - ANOREXIA [None]
  - CONFUSIONAL STATE [None]
  - CREATININE RENAL CLEARANCE DECREASED [None]
  - DEMENTIA [None]
  - DISORIENTATION [None]
  - HALLUCINATION [None]
  - MEMORY IMPAIRMENT [None]
  - RENAL FAILURE [None]
  - VOMITING [None]
  - WEIGHT DECREASED [None]
  - WERNICKE'S ENCEPHALOPATHY [None]
